FAERS Safety Report 9641592 (Version 1)
Quarter: 2013Q4

REPORT INFORMATION
  Report Type: Report from Study
  Country: US (occurrence: US)
  Receive Date: 20131023
  Receipt Date: 20131023
  Transmission Date: 20140711
  Serious: Yes (Hospitalization)
  Sender: FDA-Public Use
  Company Number: US-GLAXOSMITHKLINE-A1046210A

PATIENT
  Age: 75 Year
  Sex: Female
  Weight: 58.8 kg

DRUGS (10)
  1. CARVEDILOL [Suspect]
     Indication: HYPERTENSION
     Dosage: 6.25MG TWICE PER DAY
     Route: 048
     Dates: start: 2011
  2. INVESTIGATIONAL STUDY DRUG [Suspect]
     Indication: MYELOFIBROSIS
     Dosage: 600MG PER DAY
     Route: 048
     Dates: start: 20130815
  3. NIFEDIPINE [Suspect]
     Indication: HYPERTENSION
     Dosage: 90MG PER DAY
     Route: 048
     Dates: start: 2011
  4. ULORIC [Concomitant]
     Dates: start: 20110511
  5. LASIX [Concomitant]
     Dates: start: 20120107
  6. KCL [Concomitant]
     Dates: start: 20130206
  7. ASPIRIN [Concomitant]
     Dates: start: 20020627
  8. CALCITRIOL [Concomitant]
     Dates: start: 20121029
  9. FAMOTIDINE [Concomitant]
     Dates: start: 20130612
  10. ATORVASTATIN [Concomitant]
     Dates: start: 2002

REACTIONS (2)
  - Renal failure acute [Not Recovered/Not Resolved]
  - Hypotension [Recovering/Resolving]
